FAERS Safety Report 7134058-6 (Version None)
Quarter: 2010Q4

REPORT INFORMATION
  Report Type: 
  Country: None (occurrence: None)
  Receive Date: 20101203
  Receipt Date: 20101129
  Transmission Date: 20110411
  Serious: Yes (Other)
  Sender: FDA-Public Use
  Company Number: IT-ROXANE LABORATORIES, INC.-2010-RO-01560RO

PATIENT
  Age: 55 Year
  Sex: Male

DRUGS (4)
  1. PERINDOPRIL ERBUMINE [Suspect]
     Indication: HYPERTENSION
  2. HYDROCHLOROTHIAZIDE [Suspect]
     Indication: HYPERTENSION
  3. LANSOPRAZOLE [Suspect]
     Indication: GASTRITIS
  4. ETORICOXIB [Suspect]
     Indication: PERIARTHRITIS

REACTIONS (6)
  - BLOOD PRESSURE INCREASED [None]
  - DIZZINESS [None]
  - DRUG INEFFECTIVE [None]
  - HEADACHE [None]
  - INHIBITORY DRUG INTERACTION [None]
  - TINNITUS [None]
